FAERS Safety Report 5015887-1 (Version None)
Quarter: 2006Q2

REPORT INFORMATION
  Report Type: 
  Country: None (occurrence: None)
  Receive Date: 20060526
  Receipt Date: 20060518
  Transmission Date: 20061013
  Serious: Yes (Other)
  Sender: FDA-Public Use
  Company Number: 2006066073

PATIENT
  Sex: Male

DRUGS (1)
  1. LISTERINE (MENTHOL, METHYL SALICYLATE, EUCALYTOL, THYMOL) [Suspect]
     Dosage: UNSPECIFIED; ORAL
     Route: 048

REACTIONS (6)
  - BREATH ODOUR [None]
  - GINGIVAL DISORDER [None]
  - ORAL PAIN [None]
  - ORAL SURGERY [None]
  - SURGICAL PROCEDURE REPEATED [None]
  - TOOTH DISORDER [None]
